FAERS Safety Report 23744467 (Version 1)
Quarter: 2024Q2

REPORT INFORMATION
  Report Type: Spontaneous
  Country: US (occurrence: US)
  Receive Date: 20240415
  Receipt Date: 20240415
  Transmission Date: 20240715
  Serious: Yes (Hospitalization, Other)
  Sender: FDA-Public Use
  Company Number: US-Air Products and Chemicals, Inc. -2155589

PATIENT
  Age: 51 Year
  Sex: Male

DRUGS (1)
  1. OXYGEN [Suspect]
     Active Substance: OXYGEN

REACTIONS (3)
  - Hypotension [Unknown]
  - Supraventricular tachycardia [Recovered/Resolved]
  - Hyperhidrosis [Unknown]
